FAERS Safety Report 24831349 (Version 1)
Quarter: 2025Q1

REPORT INFORMATION
  Report Type: Spontaneous
  Country: US (occurrence: US)
  Receive Date: 20250110
  Receipt Date: 20250110
  Transmission Date: 20250409
  Serious: No
  Sender: INSUD PHARMA
  Company Number: US-INSUD PHARMA-2501US00029

PATIENT

DRUGS (1)
  1. SLYND [Suspect]
     Active Substance: DROSPIRENONE
     Indication: Product used for unknown indication
     Route: 048

REACTIONS (4)
  - Anisomastia [Recovering/Resolving]
  - Breast enlargement [Recovering/Resolving]
  - Breast swelling [Recovering/Resolving]
  - Breast pain [Recovering/Resolving]
